FAERS Safety Report 7509457-0 (Version None)
Quarter: 2011Q2

REPORT INFORMATION
  Report Type: 
  Country: None (occurrence: None)
  Receive Date: 20110527
  Receipt Date: 20110525
  Transmission Date: 20111010
  Serious: Yes (Other)
  Sender: FDA-Public Use
  Company Number: JP-PFIZER INC-2011091042

PATIENT
  Age: 62 Year
  Sex: Male
  Weight: 56 kg

DRUGS (7)
  1. VARENICLINE TARTRATE [Suspect]
     Indication: NICOTINE DEPENDENCE
     Dosage: 1 MG DAILY
     Route: 048
     Dates: start: 20110222, end: 20110225
  2. VARENICLINE TARTRATE [Suspect]
     Indication: SMOKING CESSATION THERAPY
     Dosage: 0.5 MG DAILY
     Route: 048
     Dates: start: 20110219, end: 20110221
  3. VARENICLINE TARTRATE [Suspect]
     Dosage: 1 MG DAILY
     Route: 048
     Dates: start: 20110401
  4. LAC B [Suspect]
     Indication: ABDOMINAL SYMPTOM
     Dosage: 3 G, 3X/DAY
     Route: 048
     Dates: start: 20110303, end: 20110313
  5. VARENICLINE TARTRATE [Suspect]
     Dosage: 2 MG DAILY
     Route: 048
     Dates: start: 20110226, end: 20110101
  6. STROCAIN [Suspect]
     Indication: ABDOMINAL SYMPTOM
     Dosage: 3 DF, 3X/DAY
     Route: 048
     Dates: start: 20110303, end: 20110301
  7. TSUMURA GOSHAKU-SAN [Suspect]
     Indication: ABDOMINAL SYMPTOM
     Dosage: 7.5 G, 3X/DAY
     Dates: start: 20101106, end: 20110301

REACTIONS (2)
  - BREAST MASS [None]
  - DIARRHOEA [None]
